FAERS Safety Report 6112000-4 (Version None)
Quarter: 2009Q1

REPORT INFORMATION
  Report Type: 
  Country: None (occurrence: None)
  Receive Date: 20090310
  Receipt Date: 20090224
  Transmission Date: 20090719
  Serious: Yes (Hospitalization)
  Sender: FDA-Public Use
  Company Number: GB-LLY-GBS050417254

PATIENT
  Age: 54 Year
  Sex: Male

DRUGS (4)
  1. PERGOLIDE MESYLATE [Suspect]
     Indication: PARKINSON'S DISEASE
     Dosage: 1.5 MG; TID;
  2. CO-CARELDOPA [Concomitant]
  3. MADOPAR [Concomitant]
  4. CO-BENELDOPA [Concomitant]

REACTIONS (7)
  - DYSPNOEA [None]
  - LYMPHADENOPATHY MEDIASTINAL [None]
  - MONOCYTOSIS [None]
  - OSTEITIS DEFORMANS [None]
  - PLEURAL EFFUSION [None]
  - PLEURAL FIBROSIS [None]
  - WEIGHT DECREASED [None]
